FAERS Safety Report 7575340-8 (Version None)
Quarter: 2011Q2

REPORT INFORMATION
  Report Type: 
  Country: None (occurrence: None)
  Receive Date: 20110627
  Receipt Date: 20110616
  Transmission Date: 20111010
  Serious: Yes (Disabling)
  Sender: FDA-Public Use
  Company Number: GB-ASTRAZENECA-2011SE20152

PATIENT
  Age: 42 Year
  Sex: Male

DRUGS (3)
  1. FOSTAIR [Concomitant]
     Indication: ASTHMA
     Route: 055
     Dates: start: 20110201
  2. LISINOPRIL [Suspect]
     Indication: HYPERTENSION
     Route: 048
     Dates: start: 20101213, end: 20110311
  3. ALBUTEROL [Concomitant]
     Indication: ASTHMA
     Route: 055

REACTIONS (8)
  - PERIPHERAL COLDNESS [None]
  - LIP DRY [None]
  - DRY SKIN [None]
  - INCREASED TENDENCY TO BRUISE [None]
  - NASAL DRYNESS [None]
  - SENSORY LOSS [None]
  - RAYNAUD'S PHENOMENON [None]
  - FEELING COLD [None]
